FAERS Safety Report 6217027-X (Version None)
Quarter: 2009Q2

REPORT INFORMATION
  Report Type: 
  Country: None (occurrence: None)
  Receive Date: 20090604
  Receipt Date: 20090520
  Transmission Date: 20091009
  Serious: Yes (Hospitalization)
  Sender: FDA-Public Use
  Company Number: 2009001537

PATIENT
  Age: 65 Year
  Sex: Female

DRUGS (2)
  1. TARCEVA [Suspect]
     Indication: NON-SMALL CELL LUNG CANCER
     Dosage: 50 MG QD ORAL
     Route: 048
     Dates: start: 20081101
  2. ARIXTRA [Concomitant]

REACTIONS (1)
  - CONVULSION [None]
